FAERS Safety Report 21530563 (Version 1)
Quarter: 2022Q4

REPORT INFORMATION
  Report Type: Spontaneous
  Country: US (occurrence: None)
  Receive Date: 20221029
  Receipt Date: 20221029
  Transmission Date: 20230113
  Serious: Yes (Other)
  Sender: FDA-Public Use
  Company Number: None

PATIENT
  Age: 57 Year
  Sex: Female
  Weight: 63 kg

DRUGS (4)
  1. TROSPIUM CHLORIDE [Suspect]
     Active Substance: TROSPIUM CHLORIDE
     Indication: Urinary incontinence
     Dosage: OTHER QUANTITY : 1 CAPSULE(S)?FREQUENCY : DAILY ORAL?
     Route: 048
     Dates: start: 20220728, end: 20220729
  2. COENZYME Q10 [Concomitant]
     Active Substance: DIETARY SUPPLEMENT\UBIDECARENONE
  3. EXCEDRIN MIGRAINE [Concomitant]
     Active Substance: ACETAMINOPHEN\ASPIRIN\CAFFEINE
  4. Ibuprophin [Concomitant]

REACTIONS (8)
  - Pharyngeal swelling [None]
  - Dry mouth [None]
  - Dry eye [None]
  - Nasal congestion [None]
  - Oropharyngeal pain [None]
  - Dysphonia [None]
  - Cough [None]
  - Dysphagia [None]

NARRATIVE: CASE EVENT DATE: 20220729
